FAERS Safety Report 12455394 (Version 1)
Quarter: 2016Q2

REPORT INFORMATION
  Report Type: Report from Study
  Country: ZA (occurrence: ZA)
  Receive Date: 20160610
  Receipt Date: 20160610
  Transmission Date: 20160815
  Serious: Yes (Hospitalization, Other)
  Sender: FDA-Public Use
  Company Number: PHHY2016ZA079599

PATIENT
  Sex: Female

DRUGS (1)
  1. ACLASTA [Suspect]
     Active Substance: ZOLEDRONIC ACID
     Indication: OSTEOPOROSIS
     Dosage: 5 MG (5 MG/100 ML), Q12MO
     Route: 065
     Dates: start: 201506

REACTIONS (5)
  - Gallbladder disorder [Recovering/Resolving]
  - Pancreatic mass [Recovering/Resolving]
  - Spleen disorder [Recovering/Resolving]
  - Malaise [Recovering/Resolving]
  - Pancreatic disorder [Recovering/Resolving]
